FAERS Safety Report 8527411 (Version 3)
Quarter: 2014Q4

REPORT INFORMATION
  Report Type: Spontaneous
  Country: US (occurrence: US)
  Receive Date: 20120424
  Receipt Date: 20141124
  Transmission Date: 20150529
  Serious: Yes (Life-Threatening)
  Sender: FDA-Public Use
  Company Number: US-BAYER-2012-038449

PATIENT
  Age: 35 Year
  Sex: Female
  Weight: 68.27 kg

DRUGS (16)
  1. LOTRIMIN [Concomitant]
     Active Substance: CLOTRIMAZOLE
     Dosage: UNK
     Route: 061
     Dates: start: 20100203
  2. ALBUTEROL. [Concomitant]
     Active Substance: ALBUTEROL
     Indication: ASTHMA
     Dosage: 1 PUFF,  PRN
     Dates: start: 2000
  3. YASMIN [Suspect]
     Active Substance: DROSPIRENONE\ETHINYL ESTRADIOL
     Indication: METRORRHAGIA
     Dosage: UNK
     Dates: start: 200905, end: 201001
  4. YASMIN [Suspect]
     Active Substance: DROSPIRENONE\ETHINYL ESTRADIOL
     Indication: CONTRACEPTION
     Dosage: UNK
     Dates: start: 20091201, end: 20100201
  5. SUDAFED [Concomitant]
     Active Substance: PSEUDOEPHEDRINE HYDROCHLORIDE
     Dosage: UNK
     Route: 048
     Dates: start: 20100203
  6. MUCINEX DM [Concomitant]
     Active Substance: DEXTROMETHORPHAN HYDROBROMIDE\GUAIFENESIN
     Dosage: UNK
     Route: 048
     Dates: start: 20100123, end: 20100310
  7. ZITHROMAX [Concomitant]
     Active Substance: AZITHROMYCIN DIHYDRATE
     Dosage: UNK
     Route: 048
     Dates: start: 20100310
  8. ADVAIR HFA [Concomitant]
     Active Substance: FLUTICASONE PROPIONATE\SALMETEROL XINAFOATE
     Indication: ASTHMA
     Dosage: 1 PUFF,  PRN
     Dates: start: 2000
  9. TYLENOL WITH CODEIN #2 [Concomitant]
     Dosage: UNK
     Route: 048
     Dates: start: 20100310
  10. METHYLPREDNISOLONE. [Concomitant]
     Active Substance: METHYLPREDNISOLONE
     Dosage: UNK
     Route: 048
     Dates: start: 20100310
  11. YAZ [Suspect]
     Active Substance: DROSPIRENONE\ETHINYL ESTRADIOL
     Indication: METRORRHAGIA
     Dosage: UNK
     Dates: start: 2007, end: 2009
  12. ZYRTEC [Concomitant]
     Active Substance: CETIRIZINE HYDROCHLORIDE
     Dosage: UNK
     Route: 048
     Dates: start: 20100203
  13. PROVENTIL [Concomitant]
     Active Substance: ALBUTEROL
     Dosage: UNK
     Route: 048
     Dates: start: 20100123, end: 20100203
  14. YAZ [Suspect]
     Active Substance: DROSPIRENONE\ETHINYL ESTRADIOL
     Indication: METRORRHAGIA
     Dosage: UNK
     Dates: start: 20091201, end: 20100201
  15. PREDNISONE. [Concomitant]
     Active Substance: PREDNISONE
     Dosage: 2 MG, UNK
     Route: 048
     Dates: start: 20100114
  16. NORINYL [Concomitant]
     Active Substance: ETHINYL ESTRADIOL\MESTRANOL\NORETHINDRONE

REACTIONS (2)
  - Deep vein thrombosis [None]
  - Injury [None]

NARRATIVE: CASE EVENT DATE: 20100408
